FAERS Safety Report 5326143-6 (Version None)
Quarter: 2007Q2

REPORT INFORMATION
  Report Type: 
  Country: None (occurrence: None)
  Receive Date: 20070516
  Receipt Date: 20070509
  Transmission Date: 20071010
  Serious: Yes (Hospitalization, Other)
  Sender: FDA-Public Use
  Company Number: HQWYE228123JAN07

PATIENT
  Sex: Male
  Weight: 75.36 kg

DRUGS (12)
  1. RAPAMUNE [Suspect]
     Indication: PROPHYLAXIS AGAINST TRANSPLANT REJECTION
     Route: 048
     Dates: start: 20041011
  2. INSULIN [Concomitant]
     Dosage: DOSE UNKNOWN
     Route: 065
     Dates: start: 20001101
  3. BENADRYL [Concomitant]
     Dosage: DOSE UNKNOWN
     Route: 065
     Dates: start: 20030526
  4. DOCUSATE [Concomitant]
     Dosage: DOSE UNKNOWN
     Route: 065
     Dates: start: 20030501
  5. ZANTAC [Concomitant]
     Dosage: DOSE UNKNOWN
     Route: 065
     Dates: start: 20060512
  6. CARAFATE [Concomitant]
     Dosage: DOSE UNKNOWN
     Route: 065
     Dates: start: 20041019
  7. LORTAB [Concomitant]
     Dosage: DOSE UNKNOWN
     Route: 065
     Dates: start: 20060116
  8. AVODART [Concomitant]
     Dosage: DOSE UNKNOWN
     Route: 065
     Dates: start: 20060215, end: 20060415
  9. LIPITOR [Concomitant]
     Indication: LIPIDS INCREASED
     Route: 065
     Dates: start: 20060418
  10. FLOMAX [Concomitant]
     Dosage: DOSE UNKNOWN
     Route: 065
     Dates: start: 20060215
  11. PROTONIX [Concomitant]
     Dosage: DOSE UNKNOWN
     Route: 065
     Dates: start: 20000101, end: 20060511
  12. HYDROXYZINE HYDROCHLORIDE [Concomitant]
     Dosage: DOSE UNKNOWN
     Route: 065
     Dates: start: 20030526

REACTIONS (2)
  - HEPATIC NEOPLASM MALIGNANT RECURRENT [None]
  - METASTASIS [None]
